FAERS Safety Report 15516224 (Version 2)
Quarter: 2018Q4

REPORT INFORMATION
  Report Type: Spontaneous
  Country: US (occurrence: US)
  Receive Date: 20181017
  Receipt Date: 20181116
  Transmission Date: 20190205
  Serious: Yes (Other)
  Sender: FDA-Public Use
  Company Number: US-B.I. PHARMACEUTICALS,INC./RIDGEFIELD-2018-BI-050199

PATIENT
  Age: 59 Year
  Sex: Male

DRUGS (3)
  1. OFEV [Suspect]
     Active Substance: NINTEDANIB
     Dosage: BID; FORM STRENGTH: 100 MG; FORMULATION: CAPSULE; ACTION(S) TAKEN WITH PRODUCT: DRUG INCREASED
     Route: 048
  2. OFEV [Suspect]
     Active Substance: NINTEDANIB
     Indication: IDIOPATHIC PULMONARY FIBROSIS
     Dosage: BID; FORM STRENGTH: 150 MG; FORMULATION: CAPSULE; ACTION(S) TAKEN WITH PRODUCT: DRUG WITHDRAWN
     Route: 048
  3. OFEV [Suspect]
     Active Substance: NINTEDANIB
     Dosage: BID; FORM STRENGTH: 150 MG; FORMULATION: CAPSULE; ACTION(S) TAKEN WITH PRODUCT: DRUG WITHDRAWN
     Route: 048

REACTIONS (5)
  - Colitis [Unknown]
  - Nausea [Unknown]
  - Diarrhoea [Recovered/Resolved]
  - Vomiting [Unknown]
  - Abnormal loss of weight [Unknown]
